FAERS Safety Report 7597311-8 (Version None)
Quarter: 2011Q3

REPORT INFORMATION
  Report Type: 
  Country: None (occurrence: None)
  Receive Date: 20110708
  Receipt Date: 20110427
  Transmission Date: 20111222
  Serious: No
  Sender: FDA-Public Use
  Company Number: US-GLAXOSMITHKLINE-A0924754A

PATIENT
  Age: 73 Year
  Sex: Female

DRUGS (8)
  1. FLOVENT [Suspect]
     Indication: ASTHMA
     Dosage: 2PUFF TWICE PER DAY
     Route: 055
     Dates: start: 20110301, end: 20110301
  2. SYNTHROID [Concomitant]
  3. CALCIUM CARBONATE [Concomitant]
  4. FLUOXETINE [Concomitant]
  5. ALENDRONATE SODIUM [Concomitant]
  6. AMLODIPINE [Concomitant]
  7. FLAXSEED OIL [Concomitant]
  8. POTASSIUM [Concomitant]

REACTIONS (2)
  - PRURITUS [None]
  - RASH [None]
